FAERS Safety Report 15227340 (Version 1)
Quarter: 2018Q3

REPORT INFORMATION
  Report Type: Spontaneous
  Country: US (occurrence: US)
  Receive Date: 20180706
  Receipt Date: 20180706
  Transmission Date: 20181010
  Serious: No
  Sender: FDA-Public Use
  Company Number: None

PATIENT
  Age: 74 Year
  Sex: Male

DRUGS (7)
  1. HYDROCHLOROTHIAZIDE. [Concomitant]
     Active Substance: HYDROCHLOROTHIAZIDE
  2. FIRMAGON [Concomitant]
     Active Substance: DEGARELIX ACETATE
  3. PYRIDIUM [Concomitant]
     Active Substance: PHENAZOPYRIDINE
  4. LUPRON [Concomitant]
     Active Substance: LEUPROLIDE ACETATE
  5. ZYTIGA [Suspect]
     Active Substance: ABIRATERONE ACETATE
     Indication: PROSTATE CANCER
     Route: 048
     Dates: start: 20180611
  6. AMLODIPINE [Concomitant]
     Active Substance: AMLODIPINE BESYLATE
  7. HYDRO ACETAMINOPHEN [Concomitant]

REACTIONS (2)
  - Gastric disorder [None]
  - Muscle spasms [None]

NARRATIVE: CASE EVENT DATE: 20180612
